FAERS Safety Report 7222487 (Version 3)
Quarter: 2013Q2

REPORT INFORMATION
  Report Type: Spontaneous
  Country: US (occurrence: None)
  Receive Date: 20091203
  Receipt Date: 20130415
  Transmission Date: 20140414
  Serious: Yes (Other)
  Sender: FDA-Public Use
  Company Number: 2009US004200

PATIENT
  Age: 64 Year
  Sex: Male
  Weight: 103 kg

DRUGS (18)
  1. LEXISCAN [Suspect]
     Indication: SCAN MYOCARDIAL PERFUSION
     Dosage: IV NOS
     Route: 042
     Dates: start: 20091113, end: 20091113
  2. ALBUTEROL SULFATE (SALBUTAMOL) [Concomitant]
  3. ASPIRIN [Concomitant]
  4. BACTRIM [Concomitant]
  5. BETAPACE [Concomitant]
  6. COUMADIN [Concomitant]
  7. DIGOXIN (DIGOXIN) [Concomitant]
  8. FLAXSEED OIL (LINUM USITATISSIMUM SEED OIL) [Concomitant]
  9. LASIX [Concomitant]
  10. LISINOPRIL (LISINOPRIL) [Concomitant]
  11. NEURONTIN [Concomitant]
  12. NITROSTAT [Concomitant]
  13. OMEPRAZOLE (OMEPRAZOLE) TABLET [Concomitant]
  14. POTASSIUM CHLORIDE [Concomitant]
  15. PROSCAR [Concomitant]
  16. SENOKOT [Concomitant]
  17. TERAZOSIN HYDROCHLORIDE [Concomitant]
  18. ZOCOR [Concomitant]

REACTIONS (6)
  - Aphasia [None]
  - VIIth nerve paralysis [None]
  - Tongue paralysis [None]
  - Tachycardia [None]
  - VIIth nerve paralysis [None]
  - Tongue paralysis [None]
